FAERS Safety Report 10679049 (Version 1)
Quarter: 2014Q4

REPORT INFORMATION
  Report Type: Spontaneous
  Country: GB (occurrence: GB)
  Receive Date: 20141229
  Receipt Date: 20141229
  Transmission Date: 20150529
  Serious: Yes (Other)
  Sender: FDA-Public Use
  Company Number: GB-TEVA-530359ISR

PATIENT
  Age: 63 Year
  Sex: Male

DRUGS (26)
  1. CLARITHROMYCIN. [Concomitant]
     Active Substance: CLARITHROMYCIN
  2. COCODAMOL [Concomitant]
     Active Substance: ACETAMINOPHEN\CODEINE PHOSPHATE
  3. PRAVASTATIN [Concomitant]
     Active Substance: PRAVASTATIN\PRAVASTATIN SODIUM
  4. BISOPROLOL [Concomitant]
     Active Substance: BISOPROLOL
  5. CYCLIZINE [Concomitant]
     Active Substance: CYCLIZINE
  6. FERROUS SULFATE [Concomitant]
     Active Substance: FERROUS SULFATE\FERROUS SULFATE, DRIED
  7. FOLIC ACID. [Concomitant]
     Active Substance: FOLIC ACID
  8. GASTROCOTE [Concomitant]
  9. GLYCERYL TRINITRATE [Concomitant]
     Active Substance: NITROGLYCERIN
  10. METHOTREXATE [Suspect]
     Active Substance: METHOTREXATE
     Indication: RHEUMATOID ARTHRITIS
     Dosage: SUSPENSION FOR INJECTION IN PRE-FILLED PEN
     Route: 058
     Dates: start: 2011, end: 20140904
  11. CALCIUM CARBONATE. [Concomitant]
     Active Substance: CALCIUM CARBONATE
  12. DICLOFENAC [Concomitant]
     Active Substance: DICLOFENAC
  13. NITROFURANTOIN. [Concomitant]
     Active Substance: NITROFURANTOIN
  14. LEVOTHYROXINE [Concomitant]
     Active Substance: LEVOTHYROXINE
  15. TRIMETHOPRIM. [Interacting]
     Active Substance: TRIMETHOPRIM
     Indication: URINARY TRACT INFECTION
     Dosage: 400 MILLIGRAM DAILY;
     Route: 048
     Dates: start: 20130320, end: 20140904
  16. GAVISCON [Concomitant]
     Active Substance: ALUMINUM HYDROXIDE\MAGNESIUM CARBONATE
  17. METOCLOPRAMIDE. [Concomitant]
     Active Substance: METOCLOPRAMIDE
  18. OMEPRAZOLE. [Concomitant]
     Active Substance: OMEPRAZOLE
  19. HYDROXYCHLOROQUINE [Concomitant]
     Active Substance: HYDROXYCHLOROQUINE
  20. METFORMIN [Concomitant]
     Active Substance: METFORMIN HYDROCHLORIDE
  21. SENNA [Concomitant]
     Active Substance: SENNA LEAF\SENNOSIDES\SENNOSIDES A AND B
  22. SULFASALAZINE. [Concomitant]
     Active Substance: SULFASALAZINE
  23. TAMSULOSIN [Concomitant]
     Active Substance: TAMSULOSIN
  24. CITALOPRAM [Concomitant]
     Active Substance: CITALOPRAM HYDROBROMIDE
  25. EPLERENONE. [Concomitant]
     Active Substance: EPLERENONE
  26. ASPIRIN. [Concomitant]
     Active Substance: ASPIRIN

REACTIONS (3)
  - Bone marrow failure [Recovered/Resolved]
  - Drug interaction [Unknown]
  - Medication error [Unknown]

NARRATIVE: CASE EVENT DATE: 20130320
